FAERS Safety Report 6431752-7 (Version None)
Quarter: 2009Q4

REPORT INFORMATION
  Report Type: 
  Country: None (occurrence: None)
  Receive Date: 20091104
  Receipt Date: 20091026
  Transmission Date: 20100525
  Serious: Yes (Hospitalization)
  Sender: FDA-Public Use
  Company Number: 2009SP032706

PATIENT
  Age: 57 Year
  Sex: Female
  Weight: 74.4 kg

DRUGS (3)
  1. TEMOZOLOMIDE [Suspect]
     Indication: MALIGNANT MELANOMA
     Dosage: 280 MG; QD; PO, 280 MG; QD; PO
     Route: 048
     Dates: start: 20090812, end: 20090816
  2. AVASTIN [Suspect]
     Indication: MALIGNANT MELANOMA
     Dosage: 770 MG; IV, 770 MG; IV
     Route: 042
     Dates: start: 20090812, end: 20090826
  3. AVASTIN [Suspect]
     Indication: MALIGNANT MELANOMA
     Dosage: 770 MG; IV, 770 MG; IV
     Route: 042
     Dates: start: 20090918, end: 20091002

REACTIONS (4)
  - DEHYDRATION [None]
  - MALIGNANT MELANOMA STAGE IV [None]
  - MALIGNANT NEOPLASM PROGRESSION [None]
  - PULMONARY EMBOLISM [None]
